FAERS Safety Report 6606412-X (Version None)
Quarter: 2010Q1

REPORT INFORMATION
  Report Type: 
  Country: None (occurrence: None)
  Receive Date: 20100226
  Receipt Date: 20100217
  Transmission Date: 20100710
  Serious: Yes (Other)
  Sender: FDA-Public Use
  Company Number: US-PFIZER INC-2009295009

PATIENT
  Age: 66 Year
  Sex: Male
  Weight: 79.83 kg

DRUGS (6)
  1. CYCLOPHOSPHAMIDE [Suspect]
     Indication: ANGIOCENTRIC LYMPHOMA
     Dosage: 1432 MG, IN NS (OVER 45 MIN)
     Route: 042
     Dates: start: 20080408, end: 20080409
  2. DOXORUBICIN HCL [Suspect]
     Indication: ANGIOCENTRIC LYMPHOMA
     Dosage: 96 MG, IN D5W
     Dates: start: 20080408, end: 20080409
  3. VINCRISTINE SULFATE [Suspect]
     Indication: ANGIOCENTRIC LYMPHOMA
     Dosage: 1 MG, IN NS
     Route: 042
     Dates: start: 20080408, end: 20080409
  4. PREDNISOLONE [Suspect]
     Indication: ANGIOCENTRIC LYMPHOMA
     Dosage: 100 MG, FOR 5 DAYS
     Route: 048
     Dates: start: 20080408, end: 20080412
  5. LEVAQUIN [Concomitant]
     Dosage: UNK
  6. RITUXIMAB [Concomitant]
     Dosage: UNK
     Dates: start: 20080405, end: 20080406

REACTIONS (1)
  - PANCYTOPENIA [None]
